FAERS Safety Report 11615546 (Version 4)
Quarter: 2015Q4

REPORT INFORMATION
  Report Type: Report from Study
  Country: US (occurrence: US)
  Receive Date: 20151009
  Receipt Date: 20151125
  Transmission Date: 20160304
  Serious: Yes (Death, Hospitalization)
  Sender: FDA-Public Use
  Company Number: US-BIOGENIDEC-2015BI130823

PATIENT
  Age: 49 Year
  Sex: Female
  Weight: 112 kg

DRUGS (20)
  1. POTASSIUM [Concomitant]
     Active Substance: POTASSIUM
  2. LIPITOR [Concomitant]
     Active Substance: ATORVASTATIN CALCIUM
  3. TYSABRI [Suspect]
     Active Substance: NATALIZUMAB
     Indication: MULTIPLE SCLEROSIS
     Route: 042
     Dates: start: 20090402, end: 20110912
  4. PROPANALOL [Concomitant]
  5. PAXIL [Concomitant]
     Active Substance: PAROXETINE HYDROCHLORIDE
  6. SPIRONOLACTONE. [Concomitant]
     Active Substance: SPIRONOLACTONE
  7. FLAGYL [Concomitant]
     Active Substance: METRONIDAZOLE\METRONIDAZOLE HYDROCHLORIDE
  8. RESTASIS [Concomitant]
     Active Substance: CYCLOSPORINE
  9. TYSABRI [Suspect]
     Active Substance: NATALIZUMAB
     Indication: MULTIPLE SCLEROSIS
     Route: 042
     Dates: start: 20120228, end: 20150812
  10. BACLOFEN. [Concomitant]
     Active Substance: BACLOFEN
  11. FOLIC ACID. [Concomitant]
     Active Substance: FOLIC ACID
  12. BUMEX [Concomitant]
     Active Substance: BUMETANIDE
  13. VITAMIN D [Concomitant]
     Active Substance: CHOLECALCIFEROL
  14. TYSABRI [Suspect]
     Active Substance: NATALIZUMAB
     Indication: MULTIPLE SCLEROSIS
     Route: 042
     Dates: start: 200003
  15. LASIX [Concomitant]
     Active Substance: FUROSEMIDE
  16. KEPPRA [Concomitant]
     Active Substance: LEVETIRACETAM
  17. RESTASIS [Concomitant]
     Active Substance: CYCLOSPORINE
  18. NEURONTIN [Concomitant]
     Active Substance: GABAPENTIN
  19. AMPYRA [Concomitant]
     Active Substance: DALFAMPRIDINE
     Route: 048
  20. CLONAZEPAM. [Concomitant]
     Active Substance: CLONAZEPAM

REACTIONS (8)
  - Heart rate increased [Unknown]
  - Feeling hot [Unknown]
  - Pain [Unknown]
  - Pyrexia [Unknown]
  - Erythema [Unknown]
  - Blood pressure increased [Unknown]
  - Fluid retention [Fatal]
  - Multiple sclerosis [Fatal]

NARRATIVE: CASE EVENT DATE: 2014
